FAERS Safety Report 23745268 (Version 1)
Quarter: 2024Q2

REPORT INFORMATION
  Report Type: Spontaneous
  Country: US (occurrence: US)
  Receive Date: 20240416
  Receipt Date: 20240416
  Transmission Date: 20240715
  Serious: Yes (Life-Threatening, Other)
  Sender: FDA-Public Use
  Company Number: US-SSPHARMA-2024USSSP00033

PATIENT
  Age: 78 Year
  Sex: Female

DRUGS (11)
  1. CALCITRIOL [Suspect]
     Active Substance: CALCITRIOL
     Indication: Blood parathyroid hormone increased
  2. IBUPROFEN [Suspect]
     Active Substance: IBUPROFEN
     Indication: Product used for unknown indication
  3. CALCIUM ACETATE [Suspect]
     Active Substance: CALCIUM ACETATE
     Indication: Product used for unknown indication
     Dosage: TOTAL OF 1014MG ELEMENTAL CALCIUM PER DAY, FOR PHOSPHATE BINDING
  4. VITAMIN D3 [Concomitant]
     Active Substance: CHOLECALCIFEROL
     Indication: Product used for unknown indication
  5. MIRABEGRON [Concomitant]
     Active Substance: MIRABEGRON
     Indication: Hypertonic bladder
  6. DULOXETINE [Concomitant]
     Active Substance: DULOXETINE
     Indication: Depression
  7. LEVOTHYROXINE [Concomitant]
     Active Substance: LEVOTHYROXINE\LEVOTHYROXINE SODIUM
     Indication: Hypothyroidism
  8. GABAPENTIN [Concomitant]
     Active Substance: GABAPENTIN
     Indication: Pain
  9. SIMVASTATIN [Concomitant]
     Active Substance: SIMVASTATIN
     Indication: Hypercholesterolaemia
  10. VITAMIN B12 [Concomitant]
     Active Substance: CYANOCOBALAMIN
     Indication: Product used for unknown indication
  11. VITAMIN C [Concomitant]
     Active Substance: ASCORBIC ACID

REACTIONS (7)
  - Chronic kidney disease-mineral and bone disorder [Unknown]
  - Hypercalcaemia [Unknown]
  - Osteoporosis [Unknown]
  - Hand fracture [Unknown]
  - Wrist fracture [Unknown]
  - Stress fracture [Unknown]
  - Fall [Unknown]
